FAERS Safety Report 5871547-6 (Version None)
Quarter: 2008Q3

REPORT INFORMATION
  Report Type: 
  Country: None (occurrence: None)
  Receive Date: 20080905
  Receipt Date: 20080411
  Transmission Date: 20090109
  Serious: No
  Sender: FDA-Public Use
  Company Number: A0722364A

PATIENT
  Age: 53 Year
  Sex: Female

DRUGS (2)
  1. REQUIP [Suspect]
     Dosage: 2MG UNKNOWN
     Route: 048
     Dates: start: 20080410, end: 20080410
  2. NO CONCURRENT MEDICATION [Concomitant]

REACTIONS (5)
  - DIZZINESS [None]
  - HEADACHE [None]
  - INFLUENZA [None]
  - NAUSEA [None]
  - SKIN WARM [None]
